FAERS Safety Report 5418299-1 (Version None)
Quarter: 2007Q3

REPORT INFORMATION
  Report Type: 
  Country: None (occurrence: None)
  Receive Date: 20070817
  Receipt Date: 20070807
  Transmission Date: 20080115
  Serious: Yes (Hospitalization)
  Sender: FDA-Public Use
  Company Number: US-MERCK-0708USA02487

PATIENT
  Age: 39 Year
  Sex: Male

DRUGS (1)
  1. ZOCOR [Suspect]
     Route: 048

REACTIONS (8)
  - ABDOMINAL TENDERNESS [None]
  - BLINDNESS UNILATERAL [None]
  - EXTENSOR PLANTAR RESPONSE [None]
  - HIATUS HERNIA [None]
  - HYPERVENTILATION [None]
  - MUSCULAR WEAKNESS [None]
  - SENSORY LOSS [None]
  - TREMOR [None]
